FAERS Safety Report 16002954 (Version 2)
Quarter: 2019Q2

REPORT INFORMATION
  Report Type: Spontaneous
  Country: US (occurrence: US)
  Receive Date: 20190225
  Receipt Date: 20190422
  Transmission Date: 20190711
  Serious: Yes (Other)
  Sender: FDA-Public Use
  Company Number: US-SA-2019SA049158

PATIENT
  Sex: Female

DRUGS (11)
  1. PREDNISONE. [Concomitant]
     Active Substance: PREDNISONE
  2. CLOBETASOL [Concomitant]
     Active Substance: CLOBETASOL
  3. SUMATRIPTAN. [Concomitant]
     Active Substance: SUMATRIPTAN
  4. AUBAGIO [Suspect]
     Active Substance: TERIFLUNOMIDE
     Indication: MULTIPLE SCLEROSIS
     Dosage: 14 MG, QD
     Route: 048
     Dates: start: 20181220
  5. SPIRONOLACTONE. [Concomitant]
     Active Substance: SPIRONOLACTONE
  6. KETOCONAZOLE. [Concomitant]
     Active Substance: KETOCONAZOLE
  7. AMOVIN [Concomitant]
  8. TRIAMCINOLONE [Concomitant]
     Active Substance: TRIAMCINOLONE
  9. METHOCARBAMOL. [Concomitant]
     Active Substance: METHOCARBAMOL
  10. DULOXETINE. [Concomitant]
     Active Substance: DULOXETINE
  11. MECLIZINE [Concomitant]
     Active Substance: MECLIZINE HYDROCHLORIDE

REACTIONS (4)
  - Fall [Unknown]
  - Multiple sclerosis relapse [Unknown]
  - Movement disorder [Unknown]
  - Product dose omission [Unknown]
